FAERS Safety Report 4354246-1 (Version None)
Quarter: 2004Q2

REPORT INFORMATION
  Report Type: 
  Country: None (occurrence: None)
  Receive Date: 20040506
  Receipt Date: 20040415
  Transmission Date: 20050107
  Serious: Yes (Hospitalization)
  Sender: FDA-Public Use
  Company Number: AU-BRISTOL-MYERS SQUIBB COMPANY-12577540

PATIENT
  Age: 23 Year
  Sex: Female

DRUGS (4)
  1. IFOSFAMIDE [Suspect]
     Indication: UTERINE CANCER
     Dates: start: 20000601
  2. MESNA [Suspect]
     Indication: UTERINE CANCER
     Dates: start: 20000601
  3. CARBOPLATIN [Suspect]
     Indication: UTERINE CANCER
     Dates: start: 20000601
  4. ADRIAMYCIN PFS [Suspect]
     Indication: UTERINE CANCER
     Dates: start: 20000601

REACTIONS (2)
  - FEBRILE NEUTROPENIA [None]
  - VULVAL CELLULITIS [None]
